FAERS Safety Report 7283309-6 (Version None)
Quarter: 2011Q1

REPORT INFORMATION
  Report Type: 
  Country: None (occurrence: None)
  Receive Date: 20110209
  Receipt Date: 20101213
  Transmission Date: 20110831
  Serious: No
  Sender: FDA-Public Use
  Company Number: US-BAYER-2011-006387

PATIENT
  Sex: Female

DRUGS (3)
  1. ALEVE (CAPLET) [Suspect]
     Indication: ARTHRITIS
     Dosage: 2 DF, QD, BOTTLE COUNT 200S
     Route: 048
     Dates: start: 20070601
  2. TRIAMTERENE AND HYDROCHLOROTHIAZIDE [Concomitant]
  3. COREG [Concomitant]

REACTIONS (2)
  - ROAD TRAFFIC ACCIDENT [None]
  - TINNITUS [None]
